FAERS Safety Report 4789501-4 (Version None)
Quarter: 2005Q4

REPORT INFORMATION
  Report Type: 
  Country: None (occurrence: None)
  Receive Date: 20051005
  Receipt Date: 20051005
  Transmission Date: 20060501
  Serious: Yes (Life-Threatening)
  Sender: FDA-Public Use
  Company Number: None

PATIENT
  Age: 55 Year
  Sex: Male
  Weight: 92 kg

DRUGS (8)
  1. TACROLIMUS [Suspect]
     Indication: IMMUNOSUPPRESSION
     Dosage: 2 MG PO Q12 HOURS
     Route: 048
     Dates: start: 20050404, end: 20050410
  2. LASIX [Concomitant]
  3. GANCICLOVIR [Concomitant]
  4. MEDROL [Concomitant]
  5. CELLCEPT [Concomitant]
  6. PERCOCET [Concomitant]
  7. ZANTAC [Concomitant]
  8. COLACE [Concomitant]

REACTIONS (4)
  - AGITATION [None]
  - BLOOD CREATININE INCREASED [None]
  - BLOOD PRESSURE INCREASED [None]
  - CONVULSION [None]
